FAERS Safety Report 6914841-X (Version None)
Quarter: 2010Q3

REPORT INFORMATION
  Report Type: 
  Country: None (occurrence: None)
  Receive Date: 20100804
  Receipt Date: 20100804
  Transmission Date: 20110219
  Serious: Yes (Death)
  Sender: FDA-Public Use
  Company Number: None

PATIENT
  Age: 67 Year
  Sex: Male
  Weight: 94 kg

DRUGS (2)
  1. FENTANYL [Suspect]
     Dosage: IV
     Route: 042
     Dates: start: 20100803, end: 20100803
  2. MIDAZOLAM HCL [Suspect]
     Dosage: IV
     Route: 042
     Dates: start: 20100803, end: 20100803

REACTIONS (2)
  - SEDATION [None]
  - SOMNOLENCE [None]
